FAERS Safety Report 21652935 (Version 1)
Quarter: 2022Q4

REPORT INFORMATION
  Report Type: Spontaneous
  Country: US (occurrence: None)
  Receive Date: 20221125
  Receipt Date: 20221125
  Transmission Date: 20230112
  Serious: Yes (Hospitalization)
  Sender: FDA-Public Use
  Company Number: None

PATIENT
  Sex: Female

DRUGS (2)
  1. SILDENAFIL CITRATE [Suspect]
     Active Substance: SILDENAFIL CITRATE
     Indication: Pulmonary arterial hypertension
     Dosage: 60MG TID PO?
     Route: 048
     Dates: start: 202111
  2. TYVASO [Suspect]
     Active Substance: TREPROSTINIL

REACTIONS (6)
  - Oedema [None]
  - Headache [None]
  - Fluid retention [None]
  - Dizziness [None]
  - Balance disorder [None]
  - Oxygen saturation decreased [None]
